FAERS Safety Report 5215933-6 (Version None)
Quarter: 2007Q1

REPORT INFORMATION
  Report Type: 
  Country: None (occurrence: None)
  Receive Date: 20070123
  Receipt Date: 20070112
  Transmission Date: 20070707
  Serious: Yes (Hospitalization)
  Sender: FDA-Public Use
  Company Number: DK-ELI_LILLY_AND_COMPANY-DK200610002671

PATIENT
  Age: 53 Year
  Sex: Female
  Weight: 58 kg

DRUGS (5)
  1. PINEX                                   /CAN/ [Concomitant]
     Indication: BACK PAIN
     Dosage: 1 G, 4/D
  2. DUROGESIC                               /DEN/ [Concomitant]
     Indication: BACK PAIN
     Dosage: 50 UG, EVERY HOUR
     Dates: start: 20060801
  3. VOLTAREN                                /SCH/ [Concomitant]
     Indication: BACK PAIN
     Dosage: 50 MG, UNK
     Dates: end: 20061001
  4. TERIPARATIDE [Suspect]
     Indication: OSTEOPOROSIS
     Dosage: 20 UG, DAILY (1/D)
     Route: 058
     Dates: start: 20051001, end: 20061016
  5. TERIPARATIDE [Suspect]
     Dosage: 20 UG, DAILY (1/D)
     Route: 058
     Dates: start: 20061101

REACTIONS (2)
  - ANAEMIA [None]
  - BACK PAIN [None]
